FAERS Safety Report 18451765 (Version 2)
Quarter: 2020Q4

REPORT INFORMATION
  Report Type: Spontaneous
  Country: BR (occurrence: BR)
  Receive Date: 20201102
  Receipt Date: 20201111
  Transmission Date: 20210114
  Serious: Yes (Death, Other)
  Sender: FDA-Public Use
  Company Number: BR-ROCHE-2705512

PATIENT
  Age: 68 Year
  Sex: Female

DRUGS (8)
  1. ENALAPRIL [Concomitant]
     Active Substance: ENALAPRIL
  2. ALLOPURINOL. [Concomitant]
     Active Substance: ALLOPURINOL
  3. CYCLOPHOSPHAMIDE. [Concomitant]
     Active Substance: CYCLOPHOSPHAMIDE
  4. MABTHERA [Suspect]
     Active Substance: RITUXIMAB
     Indication: B-CELL LYMPHOMA
     Route: 042
     Dates: start: 20201024
  5. DOXORUBICIN [Concomitant]
     Active Substance: DOXORUBICIN
  6. MABTHERA [Suspect]
     Active Substance: RITUXIMAB
     Dosage: MABTHERA 100MG: N7273B02; EXPIRY DATE: 30-JAN-2021; MABTHERA 500MG: N7294B15; EXPIRY DATE: 30-MAR-20
     Route: 042
     Dates: start: 20201024
  7. VINCRISTINE [Concomitant]
     Active Substance: VINCRISTINE
  8. PREDNISONE. [Concomitant]
     Active Substance: PREDNISONE

REACTIONS (10)
  - Bradycardia [Unknown]
  - Oesophageal haemorrhage [Unknown]
  - Tachycardia [Unknown]
  - Agitation [Unknown]
  - Sensory disturbance [Unknown]
  - Hyperhidrosis [Unknown]
  - Dyspnoea [Unknown]
  - Cardio-respiratory arrest [Fatal]
  - Tremor [Unknown]
  - Suffocation feeling [Unknown]

NARRATIVE: CASE EVENT DATE: 20201024
